FAERS Safety Report 7969598-0 (Version None)
Quarter: 2011Q4

REPORT INFORMATION
  Report Type: 
  Country: None (occurrence: None)
  Receive Date: 20111212
  Receipt Date: 20111207
  Transmission Date: 20120403
  Serious: Yes (Hospitalization, Other)
  Sender: FDA-Public Use
  Company Number: DE-PFIZER INC-2011272559

PATIENT
  Age: 77 Year
  Sex: Female
  Weight: 75 kg

DRUGS (2)
  1. LYRICA [Suspect]
     Indication: MYELITIS
     Dosage: 75 MG, 1X/DAY IN THE MORNING
  2. LYRICA [Suspect]
     Dosage: 200 MG, 1X/DAY IN THE EVENING

REACTIONS (6)
  - CARDIAC DISORDER [None]
  - CARDIAC FAILURE [None]
  - ARRHYTHMIA [None]
  - SWELLING FACE [None]
  - SYNCOPE [None]
  - HAEMATOMA [None]
